FAERS Safety Report 9738371 (Version 3)
Quarter: 2014Q1

REPORT INFORMATION
  Report Type: Spontaneous
  Country: FR (occurrence: FR)
  Receive Date: 20131208
  Receipt Date: 20140116
  Transmission Date: 20141002
  Serious: Yes (Other)
  Sender: FDA-Public Use
  Company Number: FR-TEVA-448093ISR

PATIENT
  Age: 64 Year
  Sex: Female
  Weight: 55 kg

DRUGS (7)
  1. OXALIPLATINE TEVA [Suspect]
     Indication: COLON CANCER METASTATIC
     Dosage: SIMPLIFIED ERBITUX-FOLFOX PROTOCOL
     Route: 041
     Dates: start: 20131024, end: 20131121
  2. 5-FLUOROURACIL [Concomitant]
     Indication: COLON CANCER METASTATIC
     Dosage: SIMPLIFIED ERBITUX-FOLFOX PROTOCOL
     Route: 041
  3. LEVOFOLINATE CALCIQUE [Concomitant]
     Indication: COLON CANCER METASTATIC
     Dosage: SIMPLIFIED ERBITUX-FOLFOX PROTOCOL
     Route: 041
  4. ERBITUX [Concomitant]
     Indication: COLON CANCER METASTATIC
     Dosage: SIMPLIFIED ERBITUX-FOLFOX PROTOCOL
     Route: 041
  5. ONDANSETRON [Concomitant]
  6. METHYLPREDNISOLONE [Concomitant]
  7. POLARAMINE [Concomitant]

REACTIONS (8)
  - VIIth nerve paralysis [Recovered/Resolved]
  - Hot flush [Recovered/Resolved]
  - Erythema [Recovered/Resolved]
  - Pruritus [Recovered/Resolved]
  - Dyspnoea [Recovered/Resolved]
  - Flushing [Recovered/Resolved]
  - Suffocation feeling [Recovered/Resolved]
  - Paraesthesia [Recovered/Resolved]
